FAERS Safety Report 5469471-6 (Version None)
Quarter: 2007Q3

REPORT INFORMATION
  Report Type: 
  Country: None (occurrence: None)
  Receive Date: 20070925
  Receipt Date: 20070925
  Transmission Date: 20080115
  Serious: Yes (Life-Threatening, Hospitalization, Other)
  Sender: FDA-Public Use
  Company Number: None

PATIENT
  Age: 79 Year
  Sex: Male
  Weight: 70 kg

DRUGS (2)
  1. RITUXIMAB GENENTECH [Suspect]
     Indication: RENAL FAILURE CHRONIC
     Dosage: 375 MG/M-2- ONCE WEEKLY IV
     Route: 042
     Dates: start: 20060429, end: 20060520
  2. RITUXIMAB GENENTECH [Suspect]
     Indication: WEGENER'S GRANULOMATOSIS
     Dosage: 375 MG/M-2- ONCE WEEKLY IV
     Route: 042
     Dates: start: 20060429, end: 20060520

REACTIONS (4)
  - BLOOD POTASSIUM INCREASED [None]
  - DRUG INEFFECTIVE [None]
  - PNEUMOCYSTIS JIROVECI PNEUMONIA [None]
  - SYNCOPE [None]
